FAERS Safety Report 18309200 (Version 2)
Quarter: 2020Q3

REPORT INFORMATION
  Report Type: Spontaneous
  Country: JP (occurrence: JP)
  Receive Date: 20200924
  Receipt Date: 20200929
  Transmission Date: 20201103
  Serious: Yes (Hospitalization)
  Sender: FDA-Public Use
  Company Number: JP-JNJFOC-20200913515

PATIENT
  Age: 50 Year
  Sex: Female
  Weight: 65.8 kg

DRUGS (25)
  1. XEPLION [Suspect]
     Active Substance: PALIPERIDONE PALMITATE
     Indication: SCHIZOPHRENIA
     Dosage: DOSE UNKNOWN
     Route: 030
     Dates: start: 201601, end: 201608
  2. XEPLION [Suspect]
     Active Substance: PALIPERIDONE PALMITATE
  3. REXULTI [Suspect]
     Active Substance: BREXPIPRAZOLE
     Route: 048
     Dates: start: 20200820
  4. AMITIZA [Concomitant]
     Active Substance: LUBIPROSTONE
     Route: 048
     Dates: start: 20200820
  5. HALCION [Concomitant]
     Active Substance: TRIAZOLAM
     Route: 048
     Dates: start: 20200820
  6. XEPLION [Suspect]
     Active Substance: PALIPERIDONE PALMITATE
     Route: 030
     Dates: start: 20170719
  7. OLANZAPINE OD [Suspect]
     Active Substance: OLANZAPINE
     Indication: SCHIZOPHRENIA
     Dosage: AT BEDTIME
     Route: 048
     Dates: end: 20200819
  8. OLOPATADINE HYDROCHLORIDE OD [Concomitant]
     Route: 048
     Dates: start: 20200820
  9. GOOFICE [Concomitant]
     Active Substance: ELOBIXIBAT
     Route: 048
     Dates: start: 20200820
  10. TSUMURA JUZENTAIHOTO EXTRACT GRANULES FOR ETHICAL USE [Concomitant]
     Indication: PHYSICAL FITNESS TRAINING
     Dosage: IN THE MORNING, AFTERNOON AND EVENING
     Route: 048
     Dates: end: 20200819
  11. TSUMURA JUZENTAIHOTO EXTRACT GRANULES FOR ETHICAL USE [Concomitant]
     Route: 048
     Dates: start: 20200820
  12. MAGNESIUM OXIDE. [Concomitant]
     Active Substance: MAGNESIUM OXIDE
     Route: 048
     Dates: start: 20200820
  13. ARIPIPRAZOLE. [Suspect]
     Active Substance: ARIPIPRAZOLE
     Dosage: AT BEDTIME
     Route: 048
     Dates: start: 20200820
  14. GOOFICE [Concomitant]
     Active Substance: ELOBIXIBAT
     Indication: CONSTIPATION
     Dosage: BEFORE DINNER
     Route: 048
     Dates: end: 20200819
  15. SODIUM VALPROATE SR [Concomitant]
     Dosage: IN THE MORNING AND EVENING
     Route: 048
     Dates: end: 20200819
  16. SODIUM VALPROATE SR [Concomitant]
     Route: 048
     Dates: start: 20200820
  17. AMITIZA [Concomitant]
     Active Substance: LUBIPROSTONE
     Indication: CONSTIPATION
     Dosage: IN THE MORNING AND EVENING
     Route: 048
     Dates: end: 20200819
  18. OLOPATADINE HYDROCHLORIDE OD [Concomitant]
     Dosage: IN THE MORNING AND EVENING
     Route: 048
     Dates: end: 20200819
  19. HALCION [Concomitant]
     Active Substance: TRIAZOLAM
     Indication: INSOMNIA
     Dosage: AT BEDTIME
     Route: 048
     Dates: end: 20200819
  20. ARIPIPRAZOLE. [Suspect]
     Active Substance: ARIPIPRAZOLE
     Indication: SCHIZOPHRENIA
     Dosage: IN THE EVENING
     Route: 048
     Dates: end: 20200819
  21. REXULTI [Suspect]
     Active Substance: BREXPIPRAZOLE
     Indication: SCHIZOPHRENIA
     Dosage: IN THE MORNING
     Route: 048
     Dates: end: 20200819
  22. OLANZAPINE OD [Suspect]
     Active Substance: OLANZAPINE
     Route: 048
     Dates: start: 20200820
  23. ARIPIPRAZOLE. [Concomitant]
     Active Substance: ARIPIPRAZOLE
     Dosage: 4 (UNSPECIFIED UNITS)
  24. ARIPIPRAZOLE. [Concomitant]
     Active Substance: ARIPIPRAZOLE
     Dosage: 2 (UNSPECIFIED UNITS)
  25. MAGNESIUM OXIDE. [Concomitant]
     Active Substance: MAGNESIUM OXIDE
     Indication: CONSTIPATION
     Dosage: IN THE MORNING, AT BEDTIME
     Route: 048
     Dates: end: 20200819

REACTIONS (2)
  - Akathisia [Recovered/Resolved]
  - Hospitalisation [Unknown]

NARRATIVE: CASE EVENT DATE: 2016
